FAERS Safety Report 4796424-3 (Version None)
Quarter: 2005Q3

REPORT INFORMATION
  Report Type: 
  Country: None (occurrence: None)
  Receive Date: 20050916
  Receipt Date: 20050128
  Transmission Date: 20060218
  Serious: Yes (Other)
  Sender: FDA-Public Use
  Company Number: US-JNJFOC-20040903641

PATIENT
  Age: 47 Year
  Sex: Female
  Weight: 99.7913 kg

DRUGS (9)
  1. TOPAMAX [Suspect]
     Indication: MIGRAINE PROPHYLAXIS
     Dosage: 50 MG  2 IN 1 DAY ORAL
     Route: 048
     Dates: start: 20040830, end: 20041108
  2. KEPPRA [Concomitant]
  3. COPAXONE [Concomitant]
  4. FLEXERIL (CYCLOBENZAORINE HYDROCHLORIDE) [Concomitant]
  5. PROVIGIL [Concomitant]
  6. MIRAPEX [Concomitant]
  7. COZAAR [Concomitant]
  8. AVONEX [Concomitant]
  9. CELEBREX [Concomitant]

REACTIONS (1)
  - ANGLE CLOSURE GLAUCOMA [None]
